FAERS Safety Report 14170018 (Version 1)
Quarter: 2017Q4

REPORT INFORMATION
  Report Type: Other
  Country: PT (occurrence: PT)
  Receive Date: 20171108
  Receipt Date: 20171108
  Transmission Date: 20180321
  Serious: Yes (Other)
  Sender: FDA-Public Use
  Company Number: PT-HIKMA PHARMACEUTICALS CO. LTD-2017PT015055

PATIENT

DRUGS (5)
  1. REMSIMA [Suspect]
     Active Substance: INFLIXIMAB
     Dosage: 10 MG, UNK
     Route: 042
     Dates: start: 2017, end: 2017
  2. MESALAZINE [Concomitant]
     Active Substance: MESALAMINE
     Dosage: 1 G, UNK
     Route: 054
     Dates: start: 20170510, end: 20170906
  3. REMSIMA [Suspect]
     Active Substance: INFLIXIMAB
     Indication: COLITIS ULCERATIVE
     Dosage: 10 MG, UNK
     Route: 042
     Dates: start: 20170718, end: 20170718
  4. MESALAZINE [Concomitant]
     Active Substance: MESALAMINE
     Dosage: 4.50 G, UNK
     Route: 048
     Dates: start: 20160301, end: 20170906
  5. CORTICOSTEROIDS [Concomitant]
     Active Substance: CORTICOSTEROID NOS
     Dosage: 40 MG, UNK
     Route: 048
     Dates: start: 20170505

REACTIONS (5)
  - Stridor [Recovered/Resolved]
  - Hypotension [Recovered/Resolved]
  - Dyspepsia [Recovered/Resolved]
  - Incorrect dose administered [Unknown]
  - Dyspnoea [Recovered/Resolved]

NARRATIVE: CASE EVENT DATE: 20170910
